FAERS Safety Report 9819057 (Version 2)
Quarter: 2014Q2

REPORT INFORMATION
  Report Type: Spontaneous
  Country: US (occurrence: US)
  Receive Date: 20140115
  Receipt Date: 20140617
  Transmission Date: 20141212
  Serious: Yes (Other)
  Sender: FDA-Public Use
  Company Number: US-PFIZER INC-2014009960

PATIENT
  Age: 57 Year
  Sex: Female
  Weight: 78 kg

DRUGS (8)
  1. LIPITOR [Suspect]
     Indication: LOW DENSITY LIPOPROTEIN INCREASED
     Dosage: 20 MG, 1X/DAY
     Route: 048
     Dates: start: 200503, end: 2012
  2. LIPITOR [Suspect]
     Indication: CARDIOVASCULAR EVENT PROPHYLAXIS
  3. CALCIUM [Concomitant]
     Indication: BONE DISORDER
     Dosage: 600 MG, 1X/DAY
     Dates: start: 1990
  4. VIT D3 [Concomitant]
     Indication: BONE DISORDER
     Dosage: 1000 IU, 2X/DAY
     Dates: start: 1990
  5. FISH OIL [Concomitant]
     Indication: BLOOD CHOLESTEROL
     Dosage: 1200 MG, 2X/DAY
     Dates: start: 1990
  6. CO Q-10 [Concomitant]
     Indication: CARDIOVASCULAR DISORDER
     Dosage: 50 MG, 2X/DAY
     Dates: start: 1990
  7. ACID CONTROLLER [Concomitant]
     Indication: HYPERCHLORHYDRIA
     Dosage: 20 MG, 1X/DAY
     Dates: start: 1990
  8. ASPIRIN [Concomitant]
     Indication: CARDIAC DISORDER
     Dosage: 325 MG, 1X/DAY
     Dates: start: 1990

REACTIONS (1)
  - Type 2 diabetes mellitus [Not Recovered/Not Resolved]
